FAERS Safety Report 8435064-1 (Version None)
Quarter: 2012Q2

REPORT INFORMATION
  Report Type: 
  Country: None (occurrence: None)
  Receive Date: 20120614
  Receipt Date: 20120605
  Transmission Date: 20120825
  Serious: Yes (Other)
  Sender: FDA-Public Use
  Company Number: PHHY2012BR049012

PATIENT
  Sex: Female
  Weight: 79 kg

DRUGS (5)
  1. CATAFLAM [Suspect]
     Indication: PAIN
     Dosage: 50 MG, QD
     Route: 048
  2. LYSINE [Concomitant]
     Indication: PROCEDURAL PAIN
     Dosage: 1 DF, QD, AT NIGHT
     Route: 048
  3. VOLTAREN [Suspect]
     Dosage: 50 MG, QD
     Route: 048
  4. ACETAMINOPHEN W/ CODEINE [Concomitant]
     Indication: PROCEDURAL PAIN
     Dosage: 1 DF, Q8H
     Route: 048
  5. DIPYRONE TAB [Concomitant]
     Indication: PROCEDURAL PAIN
     Dosage: 40 DRP, DAILY
     Route: 048

REACTIONS (8)
  - OSTEOPOROSIS [None]
  - MUSCULAR WEAKNESS [None]
  - ARTHRALGIA [None]
  - PROCEDURAL PAIN [None]
  - NAUSEA [None]
  - PAIN IN EXTREMITY [None]
  - GAIT DISTURBANCE [None]
  - RENAL DISORDER [None]
